FAERS Safety Report 16029325 (Version 1)
Quarter: 2019Q1

REPORT INFORMATION
  Report Type: Spontaneous
  Country: US (occurrence: US)
  Receive Date: 20190304
  Receipt Date: 20190304
  Transmission Date: 20190418
  Serious: Yes (Other)
  Sender: FDA-Public Use
  Company Number: US-SA-2019SA057783

PATIENT
  Age: 65 Year
  Sex: Female

DRUGS (1)
  1. AUBAGIO [Suspect]
     Active Substance: TERIFLUNOMIDE
     Indication: MULTIPLE SCLEROSIS
     Dosage: 7 MG, QD
     Route: 048
     Dates: start: 20170916

REACTIONS (5)
  - Multiple sclerosis [Unknown]
  - Mobility decreased [Unknown]
  - Urinary tract infection [Unknown]
  - Amnesia [Unknown]
  - Incontinence [Unknown]

NARRATIVE: CASE EVENT DATE: 20190225
